FAERS Safety Report 18260868 (Version 2)
Quarter: 2020Q4

REPORT INFORMATION
  Report Type: Report from Study
  Country: None (occurrence: CA)
  Receive Date: 20200914
  Receipt Date: 20201015
  Transmission Date: 20210113
  Serious: Yes (Other)
  Sender: FDA-Public Use
  Company Number: CA-ABBVIE-20K-028-3559758-00

PATIENT
  Age: 63 Year
  Sex: Male

DRUGS (1)
  1. HUMIRA [Suspect]
     Active Substance: ADALIMUMAB
     Indication: CROHN^S DISEASE
     Route: 058
     Dates: start: 20190212

REACTIONS (4)
  - Fistula discharge [Recovering/Resolving]
  - Gastrointestinal fistula [Recovering/Resolving]
  - Constipation [Not Recovered/Not Resolved]
  - Umbilical haemorrhage [Recovering/Resolving]

NARRATIVE: CASE EVENT DATE: 202009
